FAERS Safety Report 24779391 (Version 1)
Quarter: 2024Q4

REPORT INFORMATION
  Report Type: Spontaneous
  Country: TR (occurrence: TR)
  Receive Date: 20241226
  Receipt Date: 20241226
  Transmission Date: 20250115
  Serious: Yes (Death, Other)
  Sender: PFIZER
  Company Number: TR-PFIZER INC-PV202400167158

PATIENT
  Age: 75 Year
  Sex: Female

DRUGS (11)
  1. FLUCONAZOLE [Suspect]
     Active Substance: FLUCONAZOLE
     Indication: Candida infection
     Dosage: UNK
     Route: 042
  2. FLUCONAZOLE [Suspect]
     Active Substance: FLUCONAZOLE
     Indication: Pseudomonas infection
  3. FLUCONAZOLE [Suspect]
     Active Substance: FLUCONAZOLE
     Indication: Enterococcal infection
  4. IMIPENEM [Suspect]
     Active Substance: IMIPENEM
     Indication: Pseudomonas infection
     Dosage: UNK
     Route: 042
  5. IMIPENEM [Suspect]
     Active Substance: IMIPENEM
     Indication: Candida infection
  6. IMIPENEM [Suspect]
     Active Substance: IMIPENEM
     Indication: Enterococcal infection
  7. GENTAMICIN [Suspect]
     Active Substance: GENTAMICIN
     Indication: Candida infection
     Dosage: UNK
  8. GENTAMICIN [Suspect]
     Active Substance: GENTAMICIN
     Indication: Pseudomonas infection
  9. TEICOPLANIN [Suspect]
     Active Substance: TEICOPLANIN
     Indication: Candida infection
     Dosage: UNK
  10. TEICOPLANIN [Suspect]
     Active Substance: TEICOPLANIN
     Indication: Pseudomonas infection
  11. TEICOPLANIN [Suspect]
     Active Substance: TEICOPLANIN
     Indication: Enterococcal infection

REACTIONS (1)
  - Drug ineffective [Fatal]
